FAERS Safety Report 8853995 (Version 1)
Quarter: 2012Q4

REPORT INFORMATION
  Report Type: Spontaneous
  Country: US (occurrence: None)
  Receive Date: 20121019
  Receipt Date: 20121019
  Transmission Date: 20130627
  Serious: No
  Sender: FDA-Public Use
  Company Number: None

PATIENT
  Sex: Female
  Weight: 72.58 kg

DRUGS (2)
  1. MONTELUKAST [Suspect]
     Indication: ASTHMA
     Dosage: 1  daily  sz 344
     Dates: start: 20120823, end: 20120829
  2. MONTELUKAST [Suspect]
     Indication: MULTIPLE ALLERGIES
     Dosage: 1  daily  sz 344
     Dates: start: 20120823, end: 20120829

REACTIONS (7)
  - Dizziness [None]
  - Mood altered [None]
  - Sinus headache [None]
  - Myalgia [None]
  - Pain [None]
  - Product substitution issue [None]
  - Suicidal ideation [None]
